FAERS Safety Report 10856616 (Version 1)
Quarter: 2015Q1

REPORT INFORMATION
  Report Type: Spontaneous
  Country: US (occurrence: US)
  Receive Date: 20150223
  Receipt Date: 20150223
  Transmission Date: 20150721
  Serious: No
  Sender: FDA-Public Use
  Company Number: US-BAUSCH-SYM-2014-22545

PATIENT
  Age: 72 Year
  Sex: Female

DRUGS (1)
  1. CARDIZEM CD [Suspect]
     Active Substance: DILTIAZEM HYDROCHLORIDE
     Indication: PALPITATIONS
     Route: 048
     Dates: start: 20140509, end: 20140522

REACTIONS (6)
  - Rash [Unknown]
  - Middle insomnia [Unknown]
  - Photosensitivity reaction [Unknown]
  - Headache [Unknown]
  - Heart rate increased [Unknown]
  - Chest discomfort [Unknown]

NARRATIVE: CASE EVENT DATE: 201405
